FAERS Safety Report 14978273 (Version 1)
Quarter: 2018Q2

REPORT INFORMATION
  Report Type: Other
  Country: DE (occurrence: DE)
  Receive Date: 20180606
  Receipt Date: 20180606
  Transmission Date: 20180711
  Serious: Yes (Other)
  Sender: FDA-Public Use
  Company Number: DE-ACCORD-067820

PATIENT
  Age: 47 Year
  Sex: Female

DRUGS (3)
  1. PREDNISOLON GALEN [Suspect]
     Active Substance: PREDNISOLONE
     Indication: RHEUMATOID ARTHRITIS
     Dosage: DAILY DOSE: 5 MG MILLIGRAM(S) EVERY DAY?STRENGTH: 20 MG
     Route: 048
  2. ETANERCEPT [Suspect]
     Active Substance: ETANERCEPT
     Indication: RHEUMATOID ARTHRITIS
     Dosage: DAILY DOSE: 50 MG MILLIGRAM(S) EVERY WEEK
     Route: 058
  3. METHOTREXATE. [Suspect]
     Active Substance: METHOTREXATE
     Indication: RHEUMATOID ARTHRITIS
     Dosage: DAILY DOSE: 20 MG MILLIGRAM(S) EVERY WEEK
     Route: 058

REACTIONS (4)
  - Malignant neoplasm of conjunctiva [Recovering/Resolving]
  - Scleral disorder [Recovering/Resolving]
  - Symblepharon [Recovering/Resolving]
  - Atrophy [Recovering/Resolving]
